FAERS Safety Report 6999984-7 (Version None)
Quarter: 2010Q3

REPORT INFORMATION
  Report Type: 
  Country: None (occurrence: None)
  Receive Date: 20100920
  Receipt Date: 20090720
  Transmission Date: 20110219
  Serious: Yes (Other)
  Sender: FDA-Public Use
  Company Number: US-ASTRAZENECA-2007UW05821

PATIENT
  Sex: Female

DRUGS (6)
  1. SEROQUEL [Suspect]
     Route: 048
     Dates: start: 20060504
  2. CYMBALTA [Concomitant]
     Dates: start: 20060504
  3. SYNTHROID [Concomitant]
     Dates: start: 20060504
  4. WELLBUTRIN [Concomitant]
     Dates: start: 20060504
  5. CYCLOBENZAPRINE [Concomitant]
     Dates: start: 20060504
  6. ALLEGRA [Concomitant]
     Dates: start: 20060504

REACTIONS (4)
  - DIABETES MELLITUS [None]
  - KETOACIDOSIS [None]
  - PANCREATITIS [None]
  - TYPE 2 DIABETES MELLITUS [None]
